FAERS Safety Report 17604127 (Version 1)
Quarter: 2020Q1

REPORT INFORMATION
  Report Type: Spontaneous
  Country: US (occurrence: US)
  Receive Date: 20200329
  Receipt Date: 20200329
  Transmission Date: 20200409
  Serious: No
  Sender: FDA-Public Use
  Company Number: None

PATIENT
  Sex: Male

DRUGS (1)
  1. MYCOPHENOLATE [Suspect]
     Active Substance: MYCOPHENOLIC ACID
     Indication: RENAL TRANSPLANT
     Route: 048
     Dates: start: 201906

REACTIONS (5)
  - Complications of transplanted kidney [None]
  - Post transplant lymphoproliferative disorder [None]
  - Small intestinal resection [None]
  - Ileostomy [None]
  - B-cell lymphoma [None]
